FAERS Safety Report 11395575 (Version 1)
Quarter: 2015Q3

REPORT INFORMATION
  Report Type: Spontaneous
  Country: US (occurrence: None)
  Receive Date: 20150818
  Receipt Date: 20150818
  Transmission Date: 20151125
  Serious: Yes (Hospitalization, Other)
  Sender: FDA-Public Use
  Company Number: None

PATIENT
  Age: 76 Year
  Sex: Male
  Weight: 63.5 kg

DRUGS (7)
  1. B12 VITAMINS [Concomitant]
  2. OMEPRAZOLE. [Concomitant]
     Active Substance: OMEPRAZOLE
  3. ONE A DAY VITAMINS [Concomitant]
  4. TRIAMTERENE. [Concomitant]
     Active Substance: TRIAMTERENE
  5. AMLODIPINE BESYLATE. [Concomitant]
     Active Substance: AMLODIPINE BESYLATE
  6. LEVOTHYROXINE. [Concomitant]
     Active Substance: LEVOTHYROXINE
  7. HYDROMORPHONE [Suspect]
     Active Substance: HYDROMORPHONE
     Indication: SURGERY
     Dosage: 2 PILLS EVERY 4 HOURS (12 A DAY)
     Route: 048
     Dates: start: 20131212, end: 20150512

REACTIONS (25)
  - Asthenia [None]
  - Dry mouth [None]
  - Gingival disorder [None]
  - Economic problem [None]
  - Therapy cessation [None]
  - Drug withdrawal syndrome [None]
  - Gait disturbance [None]
  - Peripheral swelling [None]
  - Tooth disorder [None]
  - Decreased appetite [None]
  - Speech disorder [None]
  - Adverse drug reaction [None]
  - Vomiting [None]
  - Balance disorder [None]
  - Sleep disorder [None]
  - Weight decreased [None]
  - Gingival atrophy [None]
  - Visual impairment [None]
  - Fatigue [None]
  - Skin disorder [None]
  - Prescribed overdose [None]
  - Tooth fracture [None]
  - Pain [None]
  - Fall [None]
  - Heart rate increased [None]

NARRATIVE: CASE EVENT DATE: 20150512
